FAERS Safety Report 11234537 (Version 2)
Quarter: 2015Q3

REPORT INFORMATION
  Report Type: Report from Study
  Country: US (occurrence: None)
  Receive Date: 20150701
  Receipt Date: 20150731
  Transmission Date: 20151125
  Serious: Yes (Death, Life-Threatening, Hospitalization)
  Sender: FDA-Public Use
  Company Number: US-2015CRT000502

PATIENT
  Age: 56 Year
  Sex: Male
  Weight: 115.6 kg

DRUGS (11)
  1. ALDACTONE [Concomitant]
     Active Substance: SPIRONOLACTONE
  2. KORLYM [Suspect]
     Active Substance: MIFEPRISTONE
     Indication: BLOOD CORTISOL INCREASED
     Route: 048
     Dates: start: 20150506, end: 20150519
  3. MITOTANE (MITOTANE) [Suspect]
     Active Substance: MITOTANE
     Indication: PRODUCT USED FOR UNKNOWN INDICATION
  4. KORLYM [Suspect]
     Active Substance: MIFEPRISTONE
     Indication: CUSHING^S SYNDROME
     Route: 048
     Dates: start: 20150506, end: 20150519
  5. XANAX [Concomitant]
     Active Substance: ALPRAZOLAM
  6. CARVEDILOL. [Concomitant]
     Active Substance: CARVEDILOL
  7. ASPIRIN (ACETYLSALICYLIC ACID) [Concomitant]
     Active Substance: ASPIRIN
  8. LISINOPRIL. [Concomitant]
     Active Substance: LISINOPRIL
  9. POTASSIUM CHLORIDE (POTASSIUM CHLORIDE) [Concomitant]
     Active Substance: POTASSIUM CHLORIDE
  10. TRAZODONE [Suspect]
     Active Substance: TRAZODONE HYDROCHLORIDE
     Indication: PRODUCT USED FOR UNKNOWN INDICATION
  11. PLAVIX [Concomitant]
     Active Substance: CLOPIDOGREL BISULFATE

REACTIONS (7)
  - Oedema peripheral [None]
  - Erythema [None]
  - Drug interaction [None]
  - Lymphoedema [None]
  - Pneumonia [None]
  - Pulmonary oedema [None]
  - Blister [None]

NARRATIVE: CASE EVENT DATE: 20150509
